FAERS Safety Report 8795524 (Version 1)
Quarter: 2012Q4

REPORT INFORMATION
  Report Type: 
  Country: US (occurrence: US)
  Receive Date: 20120917
  Receipt Date: 20120917
  Transmission Date: 20130627
  Serious: No
  Sender: FDA-Public Use
  Company Number: US-B.I. PHARMACEUTICALS,INC./RIDGEFIELD-2012-BP-22402BP

PATIENT
  Sex: Female
  Weight: 91 kg

DRUGS (9)
  1. PRADAXA [Suspect]
     Indication: ATRIAL FIBRILLATION
     Dosage: 300 mg
     Route: 048
     Dates: start: 20120814
  2. IBUPROFEN [Concomitant]
     Route: 048
     Dates: end: 20120814
  3. ATENOLOL [Concomitant]
     Indication: HYPERTENSION
     Dosage: 50 mg
     Route: 048
     Dates: start: 2010, end: 201207
  4. ATENOLOL [Concomitant]
     Dosage: (Tablet) Strength: 25 mg; Daily Dose: 25 mg
     Route: 048
     Dates: start: 201207
  5. LEVOTHYROXINE [Concomitant]
     Indication: HYPOTHYROIDISM
     Dosage: 5 mcg
     Route: 048
     Dates: start: 2007
  6. BABY ASPIRIN [Concomitant]
     Indication: BLOOD DISORDER
     Route: 048
     Dates: end: 20120814
  7. ELAVIL [Concomitant]
     Indication: INSOMNIA
     Dosage: 20 mg
     Route: 048
     Dates: start: 1987
  8. SIMVASTATIN [Concomitant]
     Indication: BLOOD CHOLESTEROL INCREASED
     Dosage: 40 mg
     Route: 048
     Dates: start: 2009
  9. NORVASC [Concomitant]
     Indication: HYPERTENSION
     Route: 048
     Dates: start: 2010

REACTIONS (1)
  - Headache [Not Recovered/Not Resolved]
